FAERS Safety Report 6133095-8 (Version None)
Quarter: 2009Q1

REPORT INFORMATION
  Report Type: 
  Country: None (occurrence: None)
  Receive Date: 20090326
  Receipt Date: 20090319
  Transmission Date: 20090719
  Serious: Yes (Other)
  Sender: FDA-Public Use
  Company Number: US-BIOGENIDEC-2009BI000848

PATIENT
  Age: 41 Year
  Sex: Female

DRUGS (1)
  1. TYSABRI [Suspect]
     Indication: MULTIPLE SCLEROSIS
     Route: 042
     Dates: start: 20071213

REACTIONS (4)
  - BLADDER TRANSITIONAL CELL CARCINOMA [None]
  - HERNIA [None]
  - NEPHROLITHIASIS [None]
  - UTERINE CYST [None]
